FAERS Safety Report 8776413 (Version 1)
Quarter: 2012Q4

REPORT INFORMATION
  Report Type: 
  Country: FR (occurrence: FR)
  Receive Date: 20120910
  Receipt Date: 20120910
  Transmission Date: 20130627
  Serious: Yes (Death, Hospitalization, Other)
  Sender: FDA-Public Use
  Company Number: PHHY2012FR077939

PATIENT
  Age: 62 Year
  Sex: Male

DRUGS (14)
  1. VANCOMYCIN [Suspect]
     Indication: STAPHYLOCOCCAL INFECTION
     Route: 042
     Dates: start: 20111212, end: 20111213
  2. TAZOCILLINE [Concomitant]
     Dates: start: 20111208
  3. AMIKLIN [Concomitant]
     Dates: start: 20111208
  4. LASILIX [Concomitant]
  5. PLAVIX [Concomitant]
  6. TAHOR [Concomitant]
  7. ESOMEPRAZOLE [Concomitant]
  8. LYRICA [Concomitant]
  9. RIVOTRIL [Concomitant]
  10. BROMAZEPAM [Concomitant]
  11. TARDYFERON [Concomitant]
  12. AUGMENTIN [Concomitant]
  13. ROCEPHIN [Concomitant]
  14. TAVANIC [Concomitant]

REACTIONS (5)
  - Asthenia [Fatal]
  - Sepsis [Fatal]
  - Urticaria [Unknown]
  - Traumatic lung injury [Unknown]
  - Hypotension [Unknown]
